FAERS Safety Report 8488772-0 (Version None)
Quarter: 2012Q3

REPORT INFORMATION
  Report Type: 
  Country: None (occurrence: None)
  Receive Date: 20120705
  Receipt Date: 20120702
  Transmission Date: 20120928
  Serious: Yes (Other)
  Sender: FDA-Public Use
  Company Number: FR-ROCHE-1076455

PATIENT
  Sex: Male
  Weight: 65 kg

DRUGS (1)
  1. PEGASYS [Suspect]
     Indication: PRODUCT USED FOR UNKNOWN INDICATION
     Route: 058
     Dates: start: 20120601, end: 20120601

REACTIONS (3)
  - PARAESTHESIA [None]
  - INFLUENZA LIKE ILLNESS [None]
  - MEDICATION ERROR [None]
